FAERS Safety Report 6418091-5 (Version None)
Quarter: 2009Q4

REPORT INFORMATION
  Report Type: 
  Country: None (occurrence: None)
  Receive Date: 20091026
  Receipt Date: 20091013
  Transmission Date: 20100525
  Serious: Yes (Hospitalization)
  Sender: FDA-Public Use
  Company Number: ADR38322009

PATIENT
  Age: 88 Year
  Sex: Male

DRUGS (9)
  1. SIMVASTATIN [Suspect]
     Indication: BLOOD CHOLESTEROL INCREASED
     Dosage: 20 MG, ORAL
     Route: 048
     Dates: end: 20080429
  2. AMIODARONE HCL [Concomitant]
  3. AMLODIPINE [Concomitant]
  4. ASPIRIN [Concomitant]
  5. ISOSORBIDE MONONITRATE [Concomitant]
  6. LANSOPRAZOLE [Concomitant]
  7. MONTELUKAST [Concomitant]
  8. ALBUTEROL [Concomitant]
  9. SERETIDE [Concomitant]

REACTIONS (2)
  - HEPATITIS ACUTE [None]
  - LOWER RESPIRATORY TRACT INFECTION [None]
